FAERS Safety Report 12958583 (Version 1)
Quarter: 2016Q4

REPORT INFORMATION
  Report Type: Spontaneous
  Country: US (occurrence: US)
  Receive Date: 20161121
  Receipt Date: 20161121
  Transmission Date: 20170207
  Serious: No
  Sender: FDA-Public Use
  Company Number: US-TEVA-631829USA

PATIENT
  Sex: Male
  Weight: 86.71 kg

DRUGS (1)
  1. BUDESONIDE. [Suspect]
     Active Substance: BUDESONIDE
     Indication: DYSPNOEA
     Dates: start: 20160125, end: 20160201

REACTIONS (2)
  - Chest pain [Unknown]
  - Off label use [Unknown]
